FAERS Safety Report 22642971 (Version 1)
Quarter: 2023Q2

REPORT INFORMATION
  Report Type: Spontaneous
  Country: FR (occurrence: FR)
  Receive Date: 20230627
  Receipt Date: 20230627
  Transmission Date: 20230722
  Serious: No
  Sender: FDA-Public Use
  Company Number: FR-ALKEM LABORATORIES LIMITED-FR-ALKEM-2023-02990

PATIENT
  Sex: Female

DRUGS (4)
  1. PHENYLEPHRINE HYDROCHLORIDE [Suspect]
     Active Substance: PHENYLEPHRINE HYDROCHLORIDE
     Indication: Blood pressure management
     Dosage: 0.5 MICROGRAM/KG-1?MIN-1
     Route: 042
  2. PHENYLEPHRINE HYDROCHLORIDE [Suspect]
     Active Substance: PHENYLEPHRINE HYDROCHLORIDE
     Indication: Cardiac output
  3. PHENYLEPHRINE HYDROCHLORIDE [Suspect]
     Active Substance: PHENYLEPHRINE HYDROCHLORIDE
     Indication: Spinal anaesthesia
  4. MORPHINE SULFATE [Suspect]
     Active Substance: MORPHINE SULFATE
     Indication: Accidental exposure to product
     Dosage: 1 MILLIGRAM
     Route: 037

REACTIONS (2)
  - Accidental exposure to product [Unknown]
  - Exposure during pregnancy [Unknown]
